FAERS Safety Report 16404277 (Version 1)
Quarter: 2019Q2

REPORT INFORMATION
  Report Type: Spontaneous
  Country: US (occurrence: US)
  Receive Date: 20190501
  Receipt Date: 20190501
  Transmission Date: 20190711
  Serious: No
  Sender: FDA-Public Use
  Company Number: None

PATIENT
  Age: 69 Year
  Sex: Female

DRUGS (1)
  1. TENOFOVIR DF 300MG TAB(X30) [Suspect]
     Active Substance: TENOFOVIR DISOPROXIL FUMARATE
     Dates: start: 201902

REACTIONS (3)
  - Skin fissures [None]
  - Product physical issue [None]
  - Dry skin [None]

NARRATIVE: CASE EVENT DATE: 20190301
